FAERS Safety Report 11121836 (Version 1)
Quarter: 2015Q2

REPORT INFORMATION
  Report Type: Spontaneous
  Country: US (occurrence: US)
  Receive Date: 20150519
  Receipt Date: 20150519
  Transmission Date: 20150821
  Serious: No
  Sender: FDA-Public Use
  Company Number: US-AMGEN-USASP2015048155

PATIENT
  Age: 60 Year
  Sex: Female

DRUGS (2)
  1. ENBREL [Suspect]
     Active Substance: ETANERCEPT
     Indication: PRODUCT USED FOR UNKNOWN INDICATION
     Dosage: UNK UNK, 3 TIMES/WK
     Route: 065
     Dates: start: 2002
  2. METHOTREXATE [Concomitant]
     Active Substance: METHOTREXATE
     Dosage: 12.5 MG/WEEK IN DIVIDED DOSES OF 2.5 MG

REACTIONS (5)
  - Hyperchlorhydria [Unknown]
  - Bursitis [Unknown]
  - Upper limb fracture [Unknown]
  - Vascular purpura [Unknown]
  - Tendonitis [Unknown]

NARRATIVE: CASE EVENT DATE: 2008
